FAERS Safety Report 16375561 (Version 1)
Quarter: 2019Q2

REPORT INFORMATION
  Report Type: Spontaneous
  Country: US (occurrence: US)
  Receive Date: 20190531
  Receipt Date: 20190531
  Transmission Date: 20190711
  Serious: Yes (Hospitalization)
  Sender: FDA-Public Use
  Company Number: US-GW PHARMA-201905USGW1624

PATIENT

DRUGS (15)
  1. ATIVAN [Concomitant]
     Active Substance: LORAZEPAM
     Indication: PRODUCT USED FOR UNKNOWN INDICATION
     Dosage: 1MG, UNK
     Route: 048
     Dates: start: 20190506
  2. BANZEL [Concomitant]
     Active Substance: RUFINAMIDE
     Indication: PRODUCT USED FOR UNKNOWN INDICATION
     Dosage: 400MG, UNK
     Route: 048
     Dates: start: 20190506
  3. LAMICTAL [Concomitant]
     Active Substance: LAMOTRIGINE
     Indication: PRODUCT USED FOR UNKNOWN INDICATION
     Dosage: 250MG, UNK
     Route: 048
     Dates: start: 20190506
  4. IBUPROFEN. [Concomitant]
     Active Substance: IBUPROFEN
     Indication: PRODUCT USED FOR UNKNOWN INDICATION
     Dosage: 200MG, UNK (PRN)
     Route: 048
     Dates: start: 20190506
  5. BRIVIACT [Concomitant]
     Active Substance: BRIVARACETAM
     Dosage: 100MG, UNK
     Route: 048
     Dates: start: 20190508
  6. EPIDIOLEX [Suspect]
     Active Substance: CANNABIDIOL
     Indication: LENNOX-GASTAUT SYNDROME
     Dosage: 180 MILLIGRAM, QD (HS FOR 1 WEEK)
     Route: 048
  7. BRIVIACT [Concomitant]
     Active Substance: BRIVARACETAM
     Dosage: 25MG, UNK
     Route: 048
     Dates: start: 20190508
  8. ONFI [Concomitant]
     Active Substance: CLOBAZAM
     Indication: PRODUCT USED FOR UNKNOWN INDICATION
     Dosage: 10MG, UNK
     Route: 048
     Dates: start: 20190506
  9. DEPAKOTE [Concomitant]
     Active Substance: DIVALPROEX SODIUM
     Indication: PRODUCT USED FOR UNKNOWN INDICATION
     Dosage: 250MG, UNK
     Route: 048
     Dates: start: 20190506
  10. FOLIC ACID. [Concomitant]
     Active Substance: FOLIC ACID
     Indication: PRODUCT USED FOR UNKNOWN INDICATION
     Dosage: 400MCG, UNK
     Route: 048
     Dates: start: 20190506
  11. MULTIPLE VITAMINS [Concomitant]
     Active Substance: VITAMINS
     Indication: PRODUCT USED FOR UNKNOWN INDICATION
     Dosage: UNK
     Route: 048
     Dates: start: 20190506
  12. IRON [Concomitant]
     Active Substance: IRON
     Indication: PRODUCT USED FOR UNKNOWN INDICATION
     Dosage: 65MG, UNK
     Route: 048
     Dates: start: 20190506
  13. BRIVIACT [Concomitant]
     Active Substance: BRIVARACETAM
     Indication: PRODUCT USED FOR UNKNOWN INDICATION
     Dosage: 50MG, UNK
     Route: 048
     Dates: start: 20190506
  14. IMITREX [Concomitant]
     Active Substance: SUMATRIPTAN SUCCINATE
     Indication: PRODUCT USED FOR UNKNOWN INDICATION
     Dosage: 100MG, UNK
     Route: 048
     Dates: start: 20190506
  15. VITAMIN D [VITAMIN D NOS] [Concomitant]
     Active Substance: VITAMIN D NOS
     Indication: PRODUCT USED FOR UNKNOWN INDICATION
     Dosage: UNK (50000 UNITS)
     Route: 048
     Dates: start: 20190506

REACTIONS (2)
  - Seizure [Recovered/Resolved]
  - Face injury [Recovered/Resolved]

NARRATIVE: CASE EVENT DATE: 20190521
